FAERS Safety Report 8335567-4 (Version None)
Quarter: 2012Q2

REPORT INFORMATION
  Report Type: 
  Country: None (occurrence: None)
  Receive Date: 20120504
  Receipt Date: 20120420
  Transmission Date: 20120825
  Serious: Yes (Hospitalization, Other)
  Sender: FDA-Public Use
  Company Number: ES-MYLANLABS-2012S1008721

PATIENT
  Age: 65 Year
  Sex: Male

DRUGS (5)
  1. WARFARIN SODIUM [Concomitant]
     Indication: ATRIAL FLUTTER
  2. VALSARTAN/HYDROCHLOROTHIAZIDE [Concomitant]
     Indication: BLOOD PRESSURE INCREASED
  3. OMEPRAZOLE [Suspect]
     Indication: GASTROOESOPHAGEAL REFLUX DISEASE
  4. LEVETIRACETAM [Concomitant]
     Indication: IDIOPATHIC GENERALISED EPILEPSY
  5. DOXAZOSIN MESYLATE [Concomitant]
     Indication: BLOOD PRESSURE INCREASED

REACTIONS (5)
  - GRAND MAL CONVULSION [None]
  - HYPOMAGNESAEMIA [None]
  - HYPOKALAEMIA [None]
  - HYPOCALCAEMIA [None]
  - EPILEPSY [None]
